FAERS Safety Report 14399901 (Version 7)
Quarter: 2021Q1

REPORT INFORMATION
  Report Type: Report from Study
  Country: US (occurrence: US)
  Receive Date: 20180117
  Receipt Date: 20210208
  Transmission Date: 20210419
  Serious: Yes (Hospitalization, Other)
  Sender: FDA-Public Use
  Company Number: US-ROCHE-2054196

PATIENT
  Age: 63 Year
  Sex: Male
  Weight: 83.74 kg

DRUGS (44)
  1. ETOPOSIDE. [Suspect]
     Active Substance: ETOPOSIDE
     Indication: DIFFUSE LARGE B-CELL LYMPHOMA
     Dosage: MOST RECENT DOSE 12/MAR/2018
     Route: 042
     Dates: start: 20171227
  2. ATIVAN [Concomitant]
     Active Substance: LORAZEPAM
     Route: 048
  3. ASPIRIN. [Concomitant]
     Active Substance: ASPIRIN
     Dosage: CHEWABLE TABLET
  4. FLOMAX [Concomitant]
     Active Substance: TAMSULOSIN HYDROCHLORIDE
     Dosage: BY MOUTH NIGHTLY
  5. VINCRISTINE SULFATE. [Suspect]
     Active Substance: VINCRISTINE SULFATE
     Indication: DIFFUSE LARGE B-CELL LYMPHOMA
     Dosage: MOST RECENT DOSE 12/MAR/2018
     Route: 042
     Dates: start: 20171227
  6. CYCLOPHOSPHAMIDE. [Suspect]
     Active Substance: CYCLOPHOSPHAMIDE
     Indication: DIFFUSE LARGE B-CELL LYMPHOMA
     Dosage: MOST RECENT DOSE 12/MAR/2018
     Route: 042
     Dates: start: 20171227
  7. PREDNISONE. [Suspect]
     Active Substance: PREDNISONE
     Indication: DIFFUSE LARGE B-CELL LYMPHOMA
     Dosage: MOST RECENT DOSE 12/MAR/2018
     Route: 048
     Dates: start: 20171227
  8. PRILOSEC [Concomitant]
     Active Substance: OMEPRAZOLE MAGNESIUM
     Route: 048
  9. POLYETHYLENE GLYCOL [Concomitant]
     Active Substance: POLYETHYLENE GLYCOLS
     Route: 048
  10. LOPERAMIDE [Concomitant]
     Active Substance: LOPERAMIDE
     Indication: DIARRHOEA
  11. COLACE [Concomitant]
     Active Substance: DOCUSATE SODIUM
     Indication: CONSTIPATION
  12. DOXORUBICIN HYDROCHLORIDE. [Suspect]
     Active Substance: DOXORUBICIN HYDROCHLORIDE
     Indication: DIFFUSE LARGE B-CELL LYMPHOMA
     Dosage: MOST RECENT DOSE 12/MAR/2018
     Route: 042
     Dates: start: 20171227
  13. TYLENOL [Concomitant]
     Active Substance: ACETAMINOPHEN
  14. COMPAZINE [Concomitant]
     Active Substance: PROCHLORPERAZINE MALEATE
     Indication: NAUSEA
     Route: 048
  15. COMPAZINE [Concomitant]
     Active Substance: PROCHLORPERAZINE MALEATE
     Indication: VOMITING
  16. LOVENOX [Concomitant]
     Active Substance: ENOXAPARIN SODIUM
     Dosage: 80 MG/0.8 ML SYRIGE?0.7 ML (70 MG TOTAL) UNDER THE SKIN
     Route: 058
  17. VITAMIN D2 [Concomitant]
     Active Substance: ERGOCALCIFEROL
  18. HEPARIN FLUSH [Concomitant]
     Active Substance: HEPARIN SODIUM
     Dosage: 10 UNIT/ML KIT?INJECT 2?5 ML INTO VEIN
  19. TOPROL XL [Concomitant]
     Active Substance: METOPROLOL SUCCINATE
     Indication: AKATHISIA
     Dosage: 24 HOUR TABLET
  20. RITUXIMAB. [Suspect]
     Active Substance: RITUXIMAB
     Indication: DIFFUSE LARGE B-CELL LYMPHOMA
     Dosage: ON DAY 1 AND DAY 4 EACH CYCLE OF EPOCH?R
     Route: 042
     Dates: start: 20171227
  21. ONDANSETRON [Concomitant]
     Active Substance: ONDANSETRON
     Dosage: 1?2 TABLETS (4?8 MG TOTAL) BY MOUTH
  22. ZOFRAN [Concomitant]
     Active Substance: ONDANSETRON HYDROCHLORIDE
     Dosage: 4?8MG
     Route: 048
  23. OXYCODONE [Concomitant]
     Active Substance: OXYCODONE
     Route: 048
  24. SODIUM CHLORIDE. [Concomitant]
     Active Substance: SODIUM CHLORIDE
     Route: 042
  25. ALBUTEROL. [Concomitant]
     Active Substance: ALBUTEROL
     Dosage: INHALE 2 PUFFS INTO THE LUNGS EVERY 6 HOURS AS NEEDED
  26. ATIVAN [Concomitant]
     Active Substance: LORAZEPAM
     Indication: ANXIETY
     Dosage: 1?2 TABLETS(0.5?1 MG TOTAL) AS NEEDED
  27. MELATONIN [Concomitant]
     Active Substance: MELATONIN
  28. IBUPROFEN. [Concomitant]
     Active Substance: IBUPROFEN
     Indication: FLATULENCE
  29. NEULASTA [Concomitant]
     Active Substance: PEGFILGRASTIM
     Dosage: 6 MG/0.6 ML AS NEEDED
     Route: 058
  30. DIOVAN [Concomitant]
     Active Substance: VALSARTAN
  31. ADRIAMYCIN [Concomitant]
     Active Substance: DOXORUBICIN HYDROCHLORIDE
  32. MAXIPIME [Concomitant]
     Active Substance: CEFEPIME HYDROCHLORIDE
     Dosage: 2G/50ML
     Route: 042
  33. COZAAR [Concomitant]
     Active Substance: LOSARTAN POTASSIUM
     Route: 048
  34. LOPRESSOR [Concomitant]
     Active Substance: METOPROLOL TARTRATE
     Route: 048
  35. FLOMAX [Concomitant]
     Active Substance: TAMSULOSIN HYDROCHLORIDE
     Route: 048
  36. PRILOSEC [Concomitant]
     Active Substance: OMEPRAZOLE MAGNESIUM
  37. MIRALAX [Concomitant]
     Active Substance: POLYETHYLENE GLYCOL 3350
     Indication: CONSTIPATION
  38. SENOKOT [Concomitant]
     Active Substance: SENNOSIDES
     Dosage: 2 TABLETS BY MOUTH NIGHTLY
  39. SODIUM CHLORIDE. [Concomitant]
     Active Substance: SODIUM CHLORIDE
     Dosage: SYRIGE FLUSH?INJECT 1?20 ML INTO VEIN
  40. BENADRYL [Concomitant]
     Active Substance: DIPHENHYDRAMINE HYDROCHLORIDE
  41. ZOVIRAX [Concomitant]
     Active Substance: ACYCLOVIR
     Dosage: BY MOUTH
     Route: 048
     Dates: start: 20180227
  42. ERTAPENEM SODIUM [Concomitant]
     Active Substance: ERTAPENEM SODIUM
     Route: 042
  43. VENETOCLAX. [Suspect]
     Active Substance: VENETOCLAX
     Indication: DIFFUSE LARGE B-CELL LYMPHOMA
     Dosage: ON DAYS 3?12 IN CYCLE 1, AND DAYS 1?10 WITH ALL SUBSEQUENT CYCLES EXCEPT DOSE LEVEL ?1?CYCLE 1 DAY 1
     Route: 048
     Dates: start: 20171227
  44. LOVENOX [Concomitant]
     Active Substance: ENOXAPARIN SODIUM
     Route: 058

REACTIONS (10)
  - White blood cell count decreased [Recovered/Resolved]
  - Prostatic abscess [Unknown]
  - Lymphocyte count decreased [Recovered/Resolved]
  - Febrile neutropenia [Unknown]
  - Bacteraemia [Recovered/Resolved]
  - Urethral fistula [Unknown]
  - Platelet count decreased [Recovered/Resolved]
  - Febrile neutropenia [Unknown]
  - Escherichia urinary tract infection [Unknown]
  - Neutrophil count decreased [Recovered/Resolved]

NARRATIVE: CASE EVENT DATE: 20180101
